FAERS Safety Report 13557017 (Version 1)
Quarter: 2017Q2

REPORT INFORMATION
  Report Type: Report from Study
  Country: IE (occurrence: IE)
  Receive Date: 20170518
  Receipt Date: 20170518
  Transmission Date: 20170830
  Serious: Yes (Hospitalization, Other)
  Sender: FDA-Public Use
  Company Number: IE-AMGEN-IRLSL2017073241

PATIENT
  Age: 71 Year
  Sex: Male

DRUGS (8)
  1. ARANESP [Suspect]
     Active Substance: DARBEPOETIN ALFA
     Indication: MYELODYSPLASTIC SYNDROME
     Dosage: 300 MUG, Q3WK
     Route: 058
     Dates: start: 20170420
  2. BURINEX [Concomitant]
     Active Substance: BUMETANIDE
     Dosage: 2 MG, QD
  3. WARFARIN [Concomitant]
     Active Substance: WARFARIN
     Dosage: 6 MG, 6/7 ALTERNATE DAYS
  4. RAMIPRIL. [Concomitant]
     Active Substance: RAMIPRIL
     Dosage: 50 MG, QD
  5. OMEPRAZOLE. [Concomitant]
     Active Substance: OMEPRAZOLE
     Dosage: 20 MG, QD
  6. ALLOPURINOL. [Concomitant]
     Active Substance: ALLOPURINOL
     Dosage: 100 MG, QD
  7. CARDICOR [Concomitant]
     Active Substance: BISOPROLOL
     Dosage: 7.5 MG, QD
  8. SPIRONOLACTONE. [Concomitant]
     Active Substance: SPIRONOLACTONE
     Dosage: 50 MG, QD

REACTIONS (2)
  - Tricuspid valve disease [Not Recovered/Not Resolved]
  - Off label use [Unknown]

NARRATIVE: CASE EVENT DATE: 20170424
